FAERS Safety Report 13746809 (Version 1)
Quarter: 2017Q3

REPORT INFORMATION
  Report Type: Report from Study
  Country: US (occurrence: US)
  Receive Date: 20170712
  Receipt Date: 20170712
  Transmission Date: 20171127
  Serious: Yes (Hospitalization)
  Sender: FDA-Public Use
  Company Number: US-ACTELION-A-US2016-139300

PATIENT
  Age: 77 Year
  Sex: Female
  Weight: 86.17 kg

DRUGS (4)
  1. OPSUMIT [Suspect]
     Active Substance: MACITENTAN
     Indication: PULMONARY ARTERIAL HYPERTENSION
     Dosage: 10 MG, QD
     Route: 048
     Dates: start: 20140922
  2. DALIRESP [Concomitant]
     Active Substance: ROFLUMILAST
  3. XARELTO [Concomitant]
     Active Substance: RIVAROXABAN
  4. SPIRIVA [Concomitant]
     Active Substance: TIOTROPIUM BROMIDE MONOHYDRATE

REACTIONS (7)
  - Diarrhoea [Unknown]
  - Urticaria [Unknown]
  - Pulmonary congestion [Recovering/Resolving]
  - Sinus disorder [Unknown]
  - Nausea [Unknown]
  - Procedural haemorrhage [Unknown]
  - Sinus operation [Unknown]

NARRATIVE: CASE EVENT DATE: 20170612
